FAERS Safety Report 7952480-2 (Version None)
Quarter: 2011Q4

REPORT INFORMATION
  Report Type: 
  Country: None (occurrence: None)
  Receive Date: 20111201
  Receipt Date: 20111118
  Transmission Date: 20120403
  Serious: Yes (Hospitalization)
  Sender: FDA-Public Use
  Company Number: JP-WATSON-2011-14802

PATIENT
  Age: 91 Year
  Sex: Male

DRUGS (21)
  1. RABEPRAZOLE SODIUM [Concomitant]
     Indication: GASTRIC ULCER HAEMORRHAGE
  2. SEISHOKU [Concomitant]
     Dosage: 40 ML, UNK
     Dates: start: 20110810, end: 20110810
  3. SEISHOKU [Concomitant]
     Dosage: 20 ML, UNK
     Dates: start: 20110810, end: 20110810
  4. ADONA                              /00056903/ [Concomitant]
     Indication: GASTRIC ULCER HAEMORRHAGE
     Dosage: 50MG, UNK
     Route: 042
     Dates: start: 20110810
  5. SEISHOKU [Concomitant]
     Indication: PRODUCT USED FOR UNKNOWN INDICATION
     Dosage: 40 ML, UNK
     Dates: start: 20110810, end: 20110810
  6. RAPAFLO [Suspect]
     Indication: DYSURIA
     Dosage: 8MG DAILY
     Route: 048
     Dates: start: 20110810, end: 20110826
  7. ADONA                              /00056903/ [Concomitant]
     Indication: GASTRIC ULCER
     Dosage: 50 MG X 1-3/DAY
     Route: 042
     Dates: start: 20110804, end: 20110809
  8. TRANEXAMIC ACID [Concomitant]
     Indication: GASTRIC ULCER HAEMORRHAGE
     Dosage: 250MG
     Route: 042
     Dates: start: 20110810
  9. INTRALIPID 10% [Concomitant]
     Indication: NUTRITIONAL SUPPORT
     Dosage: 100ML, UNK
     Route: 042
     Dates: start: 20110808, end: 20110816
  10. TPN ELECTROLYTES IN PLASTIC CONTAINER [Concomitant]
     Indication: PRODUCT USED FOR UNKNOWN INDICATION
     Dosage: 500 ML, UNK
     Route: 042
     Dates: start: 20110810, end: 20110810
  11. TPN ELECTROLYTES IN PLASTIC CONTAINER [Concomitant]
     Dosage: 500 ML, UNK
     Route: 042
     Dates: start: 20110810, end: 20110810
  12. MUCOSTA [Concomitant]
     Indication: GASTRIC ULCER
     Dosage: 300MG DAILY
     Route: 048
     Dates: start: 20110804
  13. TRANEXAMIC ACID [Concomitant]
     Dosage: 250MG
     Route: 042
     Dates: start: 20110810
  14. MUCOSTA [Concomitant]
     Indication: GASTRIC ULCER HAEMORRHAGE
  15. RABEPRAZOLE SODIUM [Concomitant]
     Indication: GASTRIC ULCER
     Dosage: 20MG DAILY
     Route: 048
     Dates: start: 20110804
  16. ADONA                              /00056903/ [Concomitant]
     Dosage: 50MG, UNK
     Route: 042
     Dates: start: 20110810
  17. KNMG NO. 3 [Concomitant]
     Dosage: 500 ML, UNK
     Route: 042
     Dates: start: 20110810, end: 20110810
  18. OMEPRAZOLE [Concomitant]
     Indication: GASTRIC ULCER
     Dosage: 40MG, UNK
     Route: 042
     Dates: start: 20110810, end: 20110810
  19. OMEPRAZOLE [Concomitant]
     Indication: GASTRIC ULCER HAEMORRHAGE
  20. KNMG NO. 3 [Concomitant]
     Indication: PRODUCT USED FOR UNKNOWN INDICATION
     Dosage: 500 ML, UNK
     Route: 042
     Dates: start: 20110810, end: 20110810
  21. TRANEXAMIC ACID [Concomitant]
     Indication: GASTRIC ULCER
     Dosage: 250MG X1-3/DAY
     Route: 042
     Dates: start: 20110804, end: 20110809

REACTIONS (1)
  - LIVER DISORDER [None]
